FAERS Safety Report 4898657-4 (Version None)
Quarter: 2006Q1

REPORT INFORMATION
  Report Type: 
  Country: None (occurrence: None)
  Receive Date: 20060127
  Receipt Date: 20060117
  Transmission Date: 20060701
  Serious: Yes (Other)
  Sender: FDA-Public Use
  Company Number: 2005102461

PATIENT
  Sex: Female

DRUGS (9)
  1. CELEBREX [Suspect]
     Indication: ILL-DEFINED DISORDER
     Dates: start: 20020101, end: 20040101
  2. PREMARIN [Concomitant]
  3. ULTRACET [Concomitant]
  4. CORAL CALCIUM (CALCIUM, MINERALS NOS) [Concomitant]
  5. PLETAL [Concomitant]
  6. ASPIRIN [Concomitant]
  7. LOTREL [Concomitant]
  8. HYDROCHLORZIDE (HYDROCHLOROTHIAZIDE) [Concomitant]
  9. CENTRUM (MINERALS NOS, VITAMIN NOS) [Concomitant]

REACTIONS (15)
  - ANXIETY [None]
  - BACK PAIN [None]
  - CARDIAC DISORDER [None]
  - CARDIAC STRESS TEST ABNORMAL [None]
  - CHEST PAIN [None]
  - EMBOLISM [None]
  - FATIGUE [None]
  - FEMORAL ARTERIAL STENOSIS [None]
  - INTERMITTENT CLAUDICATION [None]
  - LERICHE SYNDROME [None]
  - OEDEMA PERIPHERAL [None]
  - PARAESTHESIA [None]
  - PERIPHERAL ARTERIAL OCCLUSIVE DISEASE [None]
  - SKIN DISCOLOURATION [None]
  - THROMBOSIS [None]
